FAERS Safety Report 14765230 (Version 4)
Quarter: 2018Q2

REPORT INFORMATION
  Report Type: Spontaneous
  Country: US (occurrence: US)
  Receive Date: 20180416
  Receipt Date: 20180508
  Transmission Date: 20180711
  Serious: Yes (Other)
  Sender: FDA-Public Use
  Company Number: US-TEVA-2018-US-880588

PATIENT
  Sex: Female

DRUGS (2)
  1. CLOPIDOGREL [Suspect]
     Active Substance: CLOPIDOGREL BISULFATE
     Route: 065
  2. ASPIRIN. [Concomitant]
     Active Substance: ASPIRIN

REACTIONS (4)
  - Thrombosis [Unknown]
  - Cerebrovascular accident [Recovering/Resolving]
  - Diverticulitis [Unknown]
  - Infection [Unknown]

NARRATIVE: CASE EVENT DATE: 20180216
